FAERS Safety Report 8830882 (Version 1)
Quarter: 2012Q4

REPORT INFORMATION
  Report Type: 
  Country: US (occurrence: US)
  Receive Date: 20121009
  Receipt Date: 20121009
  Transmission Date: 20130627
  Serious: Yes (Other)
  Sender: FDA-Public Use
  Company Number: US-RANBAXY-2012US-60719

PATIENT
  Age: 33 Year
  Sex: Female

DRUGS (3)
  1. SERTRALINE [Suspect]
     Indication: DEPRESSION
     Dosage: 50 mg, daily
     Route: 065
  2. VENLAFAXINE [Interacting]
     Indication: DEPRESSION
     Dosage: 300 mg, daily
     Route: 065
  3. TRAMADOL [Interacting]
     Indication: NEURALGIA
     Dosage: UNK
     Route: 065

REACTIONS (3)
  - Convulsion [Recovered/Resolved]
  - Drug interaction [Recovered/Resolved]
  - Drug abuse [Recovered/Resolved]
